FAERS Safety Report 17948538 (Version 2)
Quarter: 2020Q3

REPORT INFORMATION
  Report Type: Spontaneous
  Country: US (occurrence: US)
  Receive Date: 20200626
  Receipt Date: 20200702
  Transmission Date: 20201103
  Serious: Yes (Hospitalization, Other)
  Sender: FDA-Public Use
  Company Number: US-PFIZER INC-2020244607

PATIENT
  Age: 34 Year
  Sex: Female
  Weight: 52 kg

DRUGS (4)
  1. PHENELZINE SULFATE. [Suspect]
     Active Substance: PHENELZINE SULFATE
     Indication: BULIMIA NERVOSA
     Dosage: 15 MG, DAILY
  2. PHENELZINE SULFATE. [Suspect]
     Active Substance: PHENELZINE SULFATE
     Indication: VOMITING
     Dosage: UNK (GRADUALLY INCREASED BY 15?MG INCREMENTS)
  3. PHENELZINE SULFATE. [Suspect]
     Active Substance: PHENELZINE SULFATE
     Dosage: TAPERED FROM 90 TO 60 MG/DAY OVER 1 WEEK
  4. PHENELZINE SULFATE. [Suspect]
     Active Substance: PHENELZINE SULFATE
     Indication: BINGE EATING
     Dosage: 90 MG, DAILY (1 MONTH LATER)

REACTIONS (6)
  - Delirium [Recovered/Resolved]
  - Rebound psychosis [Recovered/Resolved]
  - Inappropriate schedule of product administration [Unknown]
  - Acute psychosis [Recovered/Resolved]
  - Product use in unapproved indication [Unknown]
  - Off label use [Unknown]
